FAERS Safety Report 10606568 (Version 1)
Quarter: 2014Q4

REPORT INFORMATION
  Report Type: Spontaneous
  Country: US (occurrence: None)
  Receive Date: 20141124
  Receipt Date: 20141124
  Transmission Date: 20150529
  Serious: Yes (Hospitalization)
  Sender: FDA-Public Use
  Company Number: None

PATIENT
  Age: 70 Year
  Sex: Male
  Weight: 92.6 kg

DRUGS (9)
  1. FUROSEMIDE (LASIX) [Concomitant]
  2. METFORMIN (GLUCOPHAGE) [Concomitant]
  3. PAROXETINE (PAXIL) [Concomitant]
  4. BEVACIZUMAB (RHUMAB VEGF) [Suspect]
     Active Substance: BEVACIZUMAB
  5. SPIRONOLACTONE (ALDACTONE) [Concomitant]
  6. TAXOL [Suspect]
     Active Substance: PACLITAXEL
  7. LOSARTAN HCL (HYZAAR) [Concomitant]
  8. CARBOPLATIN. [Suspect]
     Active Substance: CARBOPLATIN
  9. LANTUS [Concomitant]
     Active Substance: INSULIN GLARGINE

REACTIONS (1)
  - Death [None]

NARRATIVE: CASE EVENT DATE: 20141118
